FAERS Safety Report 7382007-8 (Version None)
Quarter: 2011Q1

REPORT INFORMATION
  Report Type: 
  Country: None (occurrence: None)
  Receive Date: 20110329
  Receipt Date: 20110324
  Transmission Date: 20110831
  Serious: Yes (Hospitalization, Other)
  Sender: FDA-Public Use
  Company Number: US-PFIZER INC-2011011024

PATIENT
  Sex: Male

DRUGS (7)
  1. ALPRAZOLAM [Concomitant]
     Indication: INSOMNIA
     Dosage: UNK
     Dates: start: 20070101
  2. ALPRAZOLAM [Concomitant]
     Indication: PAIN IN EXTREMITY
  3. HYDROCODONE [Concomitant]
     Indication: PAIN IN EXTREMITY
     Dosage: UNK
     Dates: start: 19950101
  4. OXYCODONE [Concomitant]
     Indication: PAIN IN EXTREMITY
     Dosage: UNK
     Dates: start: 20070101, end: 20090101
  5. AMITRIPTYLINE [Concomitant]
     Indication: INSOMNIA
     Dosage: UNK
     Dates: start: 20070101, end: 20090101
  6. CHANTIX [Suspect]
     Indication: SMOKING CESSATION THERAPY
     Dosage: VARENICLINE STARTER MONTH PACK
     Dates: start: 20080301, end: 20080401
  7. ALPRAZOLAM [Concomitant]
     Indication: ANXIETY

REACTIONS (6)
  - AGGRESSION [None]
  - ANXIETY [None]
  - SUICIDE ATTEMPT [None]
  - DEPRESSION [None]
  - MOOD SWINGS [None]
  - INTENTIONAL OVERDOSE [None]
